FAERS Safety Report 7796429-4 (Version None)
Quarter: 2011Q4

REPORT INFORMATION
  Report Type: 
  Country: None (occurrence: None)
  Receive Date: 20111005
  Receipt Date: 20110927
  Transmission Date: 20120403
  Serious: No
  Sender: FDA-Public Use
  Company Number: US-BIOGENIDEC-2011BI037146

PATIENT
  Age: 56 Year
  Sex: Female

DRUGS (4)
  1. AVONEX [Concomitant]
     Indication: MULTIPLE SCLEROSIS
     Route: 030
     Dates: start: 20030625, end: 20050125
  2. TYSABRI [Suspect]
     Indication: MULTIPLE SCLEROSIS
     Route: 042
     Dates: start: 20110921
  3. TYSABRI [Suspect]
     Route: 042
     Dates: start: 20061003, end: 20110405
  4. TYSABRI [Suspect]
     Route: 042
     Dates: start: 20050103

REACTIONS (2)
  - PARAESTHESIA [None]
  - SENSATION OF HEAVINESS [None]
